FAERS Safety Report 7906073-3 (Version None)
Quarter: 2011Q4

REPORT INFORMATION
  Report Type: 
  Country: None (occurrence: None)
  Receive Date: 20111109
  Receipt Date: 20111109
  Transmission Date: 20120403
  Serious: Yes (Other)
  Sender: FDA-Public Use
  Company Number: None

PATIENT
  Age: 48 Year
  Sex: Female
  Weight: 67.1324 kg

DRUGS (1)
  1. ACTOS [Suspect]
     Indication: GLUCOSE TOLERANCE IMPAIRED
     Dosage: 1 TABLET (15MG) 1 PER DAY/NIGHT ORAL
     Route: 048
     Dates: start: 20110824, end: 20110925

REACTIONS (1)
  - BLOOD GLUCOSE INCREASED [None]
